FAERS Safety Report 7810008-1 (Version None)
Quarter: 2011Q4

REPORT INFORMATION
  Report Type: 
  Country: None (occurrence: None)
  Receive Date: 20111012
  Receipt Date: 20111007
  Transmission Date: 20120403
  Serious: Yes (Other)
  Sender: FDA-Public Use
  Company Number: JP-PFIZER INC-2011241738

PATIENT
  Age: 80 Year
  Sex: Female

DRUGS (2)
  1. LYRICA [Suspect]
     Dosage: 4 CAPSULES/DAY
     Route: 048
     Dates: start: 20110930
  2. LYRICA [Suspect]
     Dosage: 1 CAPSULE/DAY
     Route: 048
     Dates: start: 20110829, end: 20110929

REACTIONS (2)
  - BEDRIDDEN [None]
  - OVERDOSE [None]
